FAERS Safety Report 19995318 (Version 1)
Quarter: 2021Q4

REPORT INFORMATION
  Report Type: Spontaneous
  Country: US (occurrence: US)
  Receive Date: 20211025
  Receipt Date: 20211025
  Transmission Date: 20220303
  Serious: No
  Sender: FDA-Public Use
  Company Number: None

PATIENT
  Age: 33 Year
  Sex: Male

DRUGS (1)
  1. HUMIRA [Suspect]
     Active Substance: ADALIMUMAB
     Dosage: OTHER FREQUENCY:OTHER;
     Route: 058
     Dates: start: 201911

REACTIONS (2)
  - Gingival bleeding [None]
  - Condition aggravated [None]

NARRATIVE: CASE EVENT DATE: 20211010
